FAERS Safety Report 17641156 (Version 1)
Quarter: 2020Q2

REPORT INFORMATION
  Report Type: Spontaneous
  Country: US (occurrence: US)
  Receive Date: 20200407
  Receipt Date: 20200407
  Transmission Date: 20200713
  Serious: No
  Sender: FDA-Public Use
  Company Number: US-AMNEAL PHARMACEUTICALS-2019AMN00280

PATIENT
  Sex: Female
  Weight: 59.86 kg

DRUGS (4)
  1. POTASSIUM CHLORIDE. [Suspect]
     Active Substance: POTASSIUM CHLORIDE
     Indication: HYPOKALAEMIA
     Dosage: 9 CAPSULES, 4X/DAY
     Route: 048
     Dates: start: 201901, end: 20190219
  2. EPLERENONE. [Concomitant]
     Active Substance: EPLERENONE
     Indication: PRODUCT USED FOR UNKNOWN INDICATION
     Dosage: UNK
     Route: 065
  3. DULOXETINE. [Concomitant]
     Active Substance: DULOXETINE
     Indication: PRODUCT USED FOR UNKNOWN INDICATION
     Dosage: UNK, 30 MG CAPSULES
     Route: 065
  4. POTASSIUM CHLORIDE. [Suspect]
     Active Substance: POTASSIUM CHLORIDE
     Indication: BARTTER^S SYNDROME
     Dosage: 9 DF, 4X/DAY
     Route: 048
     Dates: start: 201809, end: 20181219

REACTIONS (2)
  - Product substitution issue [Unknown]
  - Blood potassium decreased [Not Recovered/Not Resolved]
